FAERS Safety Report 17169118 (Version 1)
Quarter: 2019Q4

REPORT INFORMATION
  Report Type: Spontaneous
  Country: US (occurrence: US)
  Receive Date: 20191217
  Receipt Date: 20191217
  Transmission Date: 20200122
  Serious: Yes (Other)
  Sender: FDA-Public Use
  Company Number: None

PATIENT
  Age: 54 Year
  Sex: Female

DRUGS (1)
  1. OXYBUTYNIN. [Suspect]
     Active Substance: OXYBUTYNIN CHLORIDE

REACTIONS (2)
  - Constipation [None]
  - Haemorrhoidal haemorrhage [None]

NARRATIVE: CASE EVENT DATE: 20191217
